FAERS Safety Report 4420407-6 (Version None)
Quarter: 2004Q3

REPORT INFORMATION
  Report Type: 
  Country: None (occurrence: None)
  Receive Date: 20040809
  Receipt Date: 20040219
  Transmission Date: 20050211
  Serious: No
  Sender: FDA-Public Use
  Company Number: US-GLAXOSMITHKLINE-A0498869A

PATIENT
  Age: 65 Year
  Sex: Female

DRUGS (5)
  1. PAXIL CR [Suspect]
     Indication: DEPRESSION
     Dosage: 12.5MG PER DAY
     Route: 048
     Dates: start: 20031101
  2. ELMIRON [Concomitant]
  3. LIPITOR [Concomitant]
  4. MIACALCIN [Concomitant]
  5. ESTROGEN CREAM [Concomitant]

REACTIONS (1)
  - THYROID NEOPLASM [None]
